FAERS Safety Report 19902655 (Version 1)
Quarter: 2021Q3

REPORT INFORMATION
  Report Type: Report from Study
  Country: US (occurrence: US)
  Receive Date: 20210930
  Receipt Date: 20210930
  Transmission Date: 20211014
  Serious: Yes (Other)
  Sender: FDA-Public Use
  Company Number: US-PFIZER INC-202101205150

PATIENT
  Age: 60 Year
  Sex: Male

DRUGS (3)
  1. ACETAZOLAMIDE. [Suspect]
     Active Substance: ACETAZOLAMIDE
     Indication: ANGLE CLOSURE GLAUCOMA
     Dosage: 500 MG (SINGLE DOSE)
     Route: 048
  2. ACETAZOLAMIDE. [Suspect]
     Active Substance: ACETAZOLAMIDE
     Dosage: 500 MG (ANOTHER DOSE)
     Route: 048
  3. LATANOPROST. [Suspect]
     Active Substance: LATANOPROST
     Dosage: 2 DROP, DAILY (ONE DROP DAILY AT BEDTIME BOTH EYES)
     Route: 047

REACTIONS (1)
  - Choroidal effusion [Recovered/Resolved]
